FAERS Safety Report 16705773 (Version 1)
Quarter: 2019Q3

REPORT INFORMATION
  Report Type: Spontaneous
  Country: US (occurrence: US)
  Receive Date: 20190815
  Receipt Date: 20190815
  Transmission Date: 20191004
  Serious: Yes (Hospitalization)
  Sender: FDA-Public Use
  Company Number: US-ENDO PHARMACEUTICALS INC-2019-107108

PATIENT
  Age: 82 Year
  Sex: Male

DRUGS (3)
  1. KETAMINE                           /00171202/ [Concomitant]
     Active Substance: KETAMINE
     Indication: DEPRESSION
  2. DISULFIRAM. [Suspect]
     Active Substance: DISULFIRAM
     Indication: LYME DISEASE
     Dosage: 500 MG, DAILY
     Route: 048
     Dates: start: 201801, end: 201802
  3. IMIPRAMINE HYDROCHLORIDE. [Suspect]
     Active Substance: IMIPRAMINE HYDROCHLORIDE
     Indication: BLADDER SPASM
     Dosage: UNK UNKNOWN, UNKNOWN
     Route: 065

REACTIONS (4)
  - Syncope [Recovered/Resolved]
  - Drug interaction [Recovered/Resolved]
  - Concussion [Recovered/Resolved]
  - Off label use [Recovered/Resolved]

NARRATIVE: CASE EVENT DATE: 201801
